FAERS Safety Report 8491574-2 (Version None)
Quarter: 2012Q3

REPORT INFORMATION
  Report Type: 
  Country: None (occurrence: None)
  Receive Date: 20120706
  Receipt Date: 20120703
  Transmission Date: 20120928
  Serious: Yes (Other)
  Sender: FDA-Public Use
  Company Number: US-AMGEN-USASP2012008900

PATIENT
  Age: 77 Year
  Sex: Female
  Weight: 56.236 kg

DRUGS (7)
  1. ASPIRIN [Concomitant]
  2. CODEINE SULFATE [Concomitant]
  3. CALCIUM [Concomitant]
     Dosage: UNK UNK, BID
  4. PROLIA [Suspect]
     Indication: OSTEOPOROSIS POSTMENOPAUSAL
     Dosage: 60 MG/ML, Q6MO
     Dates: start: 20110701, end: 20120112
  5. CARDIZEM [Concomitant]
     Dosage: 180 MG, UNK
  6. SIMVASTATIN [Concomitant]
     Dosage: UNK
  7. PREDNISONE TAB [Concomitant]

REACTIONS (6)
  - JOINT SWELLING [None]
  - HEART RATE INCREASED [None]
  - ARTHRALGIA [None]
  - DYSPNOEA [None]
  - INCORRECT ROUTE OF DRUG ADMINISTRATION [None]
  - HYPOGAMMAGLOBULINAEMIA [None]
